FAERS Safety Report 7718933-7 (Version None)
Quarter: 2011Q3

REPORT INFORMATION
  Report Type: 
  Country: None (occurrence: None)
  Receive Date: 20110830
  Receipt Date: 20110822
  Transmission Date: 20111222
  Serious: Yes (Other)
  Sender: FDA-Public Use
  Company Number: US-GLAXOSMITHKLINE-A0839935A

PATIENT
  Age: 62 Year
  Sex: Female

DRUGS (11)
  1. AVALIDE [Concomitant]
     Dosage: 12.5MG PER DAY
  2. LASIX [Concomitant]
     Dosage: 40MG TWICE PER DAY
  3. ESTROGENIC SUBSTANCE [Concomitant]
  4. XANAX [Concomitant]
  5. SPIRIVA [Concomitant]
  6. CELEXA [Concomitant]
     Dosage: 40MG PER DAY
  7. FLEXERIL [Concomitant]
  8. MELOXICAM [Concomitant]
     Dosage: 7.5MG TWICE PER DAY
  9. POTASSIUM [Concomitant]
  10. ADVAIR DISKUS 100/50 [Suspect]
     Indication: CHRONIC OBSTRUCTIVE PULMONARY DISEASE
     Route: 055
  11. TOPROL-XL [Concomitant]

REACTIONS (2)
  - PNEUMONIA [None]
  - TOOTH LOSS [None]
